FAERS Safety Report 16282799 (Version 1)
Quarter: 2019Q2

REPORT INFORMATION
  Report Type: Spontaneous
  Country: TW (occurrence: TW)
  Receive Date: 20190507
  Receipt Date: 20190507
  Transmission Date: 20190711
  Serious: Yes (Hospitalization, Other)
  Sender: FDA-Public Use
  Company Number: TW-BAYER-2019-088809

PATIENT
  Age: 48 Year
  Sex: Male
  Weight: 81 kg

DRUGS (6)
  1. VENTAVIS [Suspect]
     Active Substance: ILOPROST
     Indication: PULMONARY ARTERIAL HYPERTENSION
     Dosage: UNK
     Dates: start: 201309
  2. ADEMPAS [Suspect]
     Active Substance: RIOCIGUAT
     Dosage: UNK
     Dates: start: 2013
  3. UPTRAVI [Concomitant]
     Active Substance: SELEXIPAG
     Dosage: UNK
     Dates: start: 20180509
  4. REVATIO [Suspect]
     Active Substance: SILDENAFIL CITRATE
     Indication: PULMONARY ARTERIAL HYPERTENSION
     Dosage: UNK
     Route: 048
     Dates: start: 201005, end: 2013
  5. SILDENAFIL CITRATE. [Concomitant]
     Active Substance: SILDENAFIL CITRATE
     Dosage: UNK
     Dates: end: 2013
  6. TRACLEER [Suspect]
     Active Substance: BOSENTAN
     Indication: PULMONARY ARTERIAL HYPERTENSION
     Dosage: UNK
     Route: 048
     Dates: start: 201006

REACTIONS (19)
  - Asthma [None]
  - Oedema peripheral [None]
  - Right ventricular dilatation [None]
  - Pulmonary arterial hypertension [Recovering/Resolving]
  - PO2 decreased [None]
  - Wheezing [None]
  - Abdominal distension [None]
  - Right ventricular failure [None]
  - White blood cell count increased [None]
  - Cough [None]
  - Organising pneumonia [None]
  - Pulmonary arterial hypertension [None]
  - Cough [None]
  - Spontaneous penile erection [None]
  - Lung infection [None]
  - Dyspnoea [None]
  - Dyspnoea exertional [None]
  - Weight increased [None]
  - Right atrial dilatation [None]

NARRATIVE: CASE EVENT DATE: 2013
